FAERS Safety Report 4689022-3 (Version None)
Quarter: 2005Q2

REPORT INFORMATION
  Report Type: 
  Country: None (occurrence: None)
  Receive Date: 20050613
  Receipt Date: 20050610
  Transmission Date: 20051028
  Serious: Yes (Death, Hospitalization)
  Sender: FDA-Public Use
  Company Number: PHBS2005FI08233

PATIENT
  Age: 52 Year
  Sex: Male

DRUGS (5)
  1. TRILEPTAL [Suspect]
     Indication: EPILEPSY
     Dosage: 900 MG/D
     Route: 048
     Dates: start: 19960101, end: 19970201
  2. TRILEPTAL [Suspect]
     Dosage: 1200 MG/D
     Route: 048
     Dates: start: 19970201, end: 20030601
  3. TRILEPTAL [Suspect]
     Dosage: 1500 MG/D
     Route: 048
     Dates: start: 20030601
  4. FRISIUM [Concomitant]
     Indication: EPILEPSY
     Dosage: 20 MG/D
     Route: 048
     Dates: start: 19990301
  5. PANACOD [Concomitant]
     Dosage: UNK, PRN
     Dates: start: 20050118

REACTIONS (7)
  - ANTICONVULSANT DRUG LEVEL INCREASED [None]
  - BLOOD SODIUM DECREASED [None]
  - FALL [None]
  - FEELING ABNORMAL [None]
  - PNEUMONIA ASPIRATION [None]
  - VOMITING [None]
  - WOUND [None]
